FAERS Safety Report 7054750-1 (Version None)
Quarter: 2010Q4

REPORT INFORMATION
  Report Type: 
  Country: None (occurrence: None)
  Receive Date: 20101018
  Receipt Date: 20101008
  Transmission Date: 20110411
  Serious: Yes (Other)
  Sender: FDA-Public Use
  Company Number: DEP_00418_2010

PATIENT
  Sex: Female
  Weight: 73.9363 kg

DRUGS (9)
  1. GLUMETZA [Suspect]
     Indication: DIABETES MELLITUS
     Dosage: (500 MG TID ORAL) ; (1/2 TABLET THREE TIMES DAILY ORAL)
     Route: 048
     Dates: start: 20070101, end: 20100901
  2. GLUMETZA [Suspect]
     Indication: DIABETES MELLITUS
     Dosage: (500 MG TID ORAL) ; (1/2 TABLET THREE TIMES DAILY ORAL)
     Route: 048
     Dates: start: 20100901
  3. LANSOPRAZOLE [Concomitant]
  4. PRAVASTATIN [Concomitant]
  5. PAXIL [Concomitant]
  6. CLONAZEPAM [Concomitant]
  7. TRAZODONE [Concomitant]
  8. DEPAKOTE [Concomitant]
  9. SYNTHROID [Concomitant]

REACTIONS (3)
  - CHOKING [None]
  - DYSPHAGIA [None]
  - FOREIGN BODY [None]
